FAERS Safety Report 7493446-9 (Version None)
Quarter: 2011Q2

REPORT INFORMATION
  Report Type: 
  Country: None (occurrence: None)
  Receive Date: 20110520
  Receipt Date: 20110504
  Transmission Date: 20111010
  Serious: No
  Sender: FDA-Public Use
  Company Number: US-B.I. PHARMACEUTICALS,INC./RIDGEFIELD-2011-BP-09370BP

PATIENT
  Sex: Female

DRUGS (1)
  1. PRADAXA [Suspect]
     Indication: ATRIAL FIBRILLATION
     Route: 048
     Dates: start: 20110318

REACTIONS (7)
  - ODYNOPHAGIA [None]
  - DISCOMFORT [None]
  - DYSPHAGIA [None]
  - CHEST DISCOMFORT [None]
  - LIVER DISORDER [None]
  - DYSPEPSIA [None]
  - ABDOMINAL DISCOMFORT [None]
